FAERS Safety Report 10158994 (Version 1)
Quarter: 2014Q2

REPORT INFORMATION
  Report Type: Spontaneous
  Country: US (occurrence: US)
  Receive Date: 20140508
  Receipt Date: 20140508
  Transmission Date: 20141212
  Serious: No
  Sender: FDA-Public Use
  Company Number: US-BIOGENIDEC-2014BI040035

PATIENT
  Sex: Female

DRUGS (10)
  1. TECFIDERA [Suspect]
     Indication: MULTIPLE SCLEROSIS
     Route: 048
     Dates: start: 20140327, end: 20140402
  2. TECFIDERA [Suspect]
     Indication: MULTIPLE SCLEROSIS
     Route: 048
     Dates: start: 20140403
  3. BACLOFEN [Concomitant]
  4. VESICARE [Concomitant]
  5. CARDIAZEM [Concomitant]
  6. OMEPRAZOLE [Concomitant]
  7. AMITRIPTYLLINE [Concomitant]
  8. MIRAPEX [Concomitant]
  9. MODAFINIL [Concomitant]
  10. VITAMIN D [Concomitant]

REACTIONS (2)
  - Constipation [Unknown]
  - Abdominal discomfort [Unknown]
